FAERS Safety Report 17142481 (Version 6)
Quarter: 2021Q1

REPORT INFORMATION
  Report Type: Spontaneous
  Country: US (occurrence: US)
  Receive Date: 20191211
  Receipt Date: 20210208
  Transmission Date: 20210419
  Serious: Yes (Other)
  Sender: FDA-Public Use
  Company Number: US-PFIZER INC-2019535266

PATIENT
  Age: 72 Year
  Sex: Female

DRUGS (2)
  1. LUTEIN [XANTOFYL] [Concomitant]
     Indication: EYE DISORDER
     Dosage: UNK
  2. XELJANZ [Suspect]
     Active Substance: TOFACITINIB CITRATE
     Dosage: 5 MG

REACTIONS (6)
  - Deafness [Unknown]
  - Nasopharyngitis [Unknown]
  - Sinus congestion [Unknown]
  - White blood cell count decreased [Unknown]
  - Sluggishness [Unknown]
  - Cough [Unknown]

NARRATIVE: CASE EVENT DATE: 20200101
